FAERS Safety Report 19112515 (Version 1)
Quarter: 2021Q2

REPORT INFORMATION
  Report Type: Spontaneous
  Country: US (occurrence: US)
  Receive Date: 20210409
  Receipt Date: 20210409
  Transmission Date: 20210717
  Serious: Yes (Hospitalization)
  Sender: FDA-Public Use
  Company Number: None

PATIENT
  Age: 57 Year
  Sex: Male

DRUGS (11)
  1. AMLODIPINE [Concomitant]
     Active Substance: AMLODIPINE BESYLATE
  2. CIALIS [Concomitant]
     Active Substance: TADALAFIL
  3. LORAZEPAM. [Concomitant]
     Active Substance: LORAZEPAM
  4. KENALOG SPRAY [Concomitant]
  5. MESALAMINE. [Concomitant]
     Active Substance: MESALAMINE
  6. FLONASE ALGY [Concomitant]
  7. MELOXICAM. [Concomitant]
     Active Substance: MELOXICAM
  8. HUMIRA [Suspect]
     Active Substance: ADALIMUMAB
     Indication: RHEUMATOID ARTHRITIS
     Route: 058
     Dates: start: 20200618
  9. GABAPENTIN. [Concomitant]
     Active Substance: GABAPENTIN
  10. LISINOPRIL. [Concomitant]
     Active Substance: LISINOPRIL
  11. SIMVASTATIN. [Concomitant]
     Active Substance: SIMVASTATIN

REACTIONS (1)
  - Myocardial infarction [None]

NARRATIVE: CASE EVENT DATE: 20210408
